FAERS Safety Report 12715840 (Version 1)
Quarter: 2016Q3

REPORT INFORMATION
  Report Type: Spontaneous
  Country: GB (occurrence: GB)
  Receive Date: 20160906
  Receipt Date: 20160906
  Transmission Date: 20161109
  Serious: Yes (Other)
  Sender: FDA-Public Use
  Company Number: GB-AUROBINDO-AUR-APL-2016-10890

PATIENT
  Age: 51 Year
  Sex: Female
  Weight: 105 kg

DRUGS (2)
  1. LANSOPRAZOLE. [Concomitant]
     Active Substance: LANSOPRAZOLE
     Indication: PRODUCT USED FOR UNKNOWN INDICATION
     Dosage: 1 DF, ONCE A DAY
     Route: 065
     Dates: start: 20140827
  2. NAPROXEN 500MG [Suspect]
     Active Substance: NAPROXEN
     Indication: BACK PAIN
     Dosage: 500 MG, TWO TIMES A DAY
     Route: 065
     Dates: start: 20160812

REACTIONS (5)
  - Abdominal distension [Recovering/Resolving]
  - Joint swelling [Recovering/Resolving]
  - Lethargy [Unknown]
  - Pain [Unknown]
  - Pollakiuria [Unknown]

NARRATIVE: CASE EVENT DATE: 20160812
